FAERS Safety Report 13711498 (Version 25)
Quarter: 2021Q3

REPORT INFORMATION
  Report Type: Spontaneous
  Country: CA (occurrence: CA)
  Receive Date: 20170703
  Receipt Date: 20210705
  Transmission Date: 20211014
  Serious: Yes (Other)
  Sender: FDA-Public Use
  Company Number: CA-CELLTRION INC.-2017CA006285

PATIENT

DRUGS (32)
  1. INFLECTRA [Suspect]
     Active Substance: INFLIXIMAB-DYYB
     Dosage: 258 MG, EVERY 8 WEEKS
     Route: 042
     Dates: start: 20180404
  2. INFLECTRA [Suspect]
     Active Substance: INFLIXIMAB-DYYB
     Dosage: 258 MG, EVERY 8 WEEKS
     Route: 042
     Dates: start: 20190109, end: 20190109
  3. INFLECTRA [Suspect]
     Active Substance: INFLIXIMAB-DYYB
     Dosage: 258 MG, EVERY 8 WEEKS
     Route: 042
     Dates: start: 20190619, end: 20190619
  4. METFORMIN [Concomitant]
     Active Substance: METFORMIN HYDROCHLORIDE
     Dosage: 500 MG, 1X/DAY
     Route: 065
  5. VITAMIN B12 [Concomitant]
     Active Substance: CYANOCOBALAMIN
     Dosage: 1 DF, DOSAGE NOT AVAILABLE
     Route: 065
  6. COVID?19 VACCINE [Concomitant]
     Dosage: UNK
     Dates: start: 20210331
  7. INFLECTRA [Suspect]
     Active Substance: INFLIXIMAB-DYYB
     Indication: RHEUMATOID ARTHRITIS
     Dosage: 242 MG, EVERY 0, 2, 6 WEEKS, THEN EVERY 8 WEEKS
     Route: 042
     Dates: start: 20170510, end: 20180207
  8. INFLECTRA [Suspect]
     Active Substance: INFLIXIMAB-DYYB
     Dosage: 300 MG, UNK
     Route: 042
     Dates: start: 20171213, end: 20171213
  9. INFLECTRA [Suspect]
     Active Substance: INFLIXIMAB-DYYB
     Dosage: 242 MG, EVERY 0, 2, 6 WEEKS, THEN EVERY 8 WEEKS
     Route: 042
     Dates: end: 20180207
  10. INFLECTRA [Suspect]
     Active Substance: INFLIXIMAB-DYYB
     Dosage: 258 MG, EVERY 8 WEEKS
     Route: 042
     Dates: start: 20181115, end: 20181115
  11. INFLECTRA [Suspect]
     Active Substance: INFLIXIMAB-DYYB
     Dosage: 258 MG, EVERY 8 WEEKS
     Route: 042
     Dates: start: 20190424, end: 20190424
  12. INFLECTRA [Suspect]
     Active Substance: INFLIXIMAB-DYYB
     Dosage: 258 MG (EVERY 8 WEEKS)
     Route: 042
     Dates: start: 20200715, end: 20200715
  13. LEFLUNOMIDE. [Concomitant]
     Active Substance: LEFLUNOMIDE
     Dosage: 10 MG, 1X/DAY
     Route: 065
  14. METHOTREXATE. [Concomitant]
     Active Substance: METHOTREXATE
     Dosage: 1 DF, UNKNOWN DOSE
     Route: 065
     Dates: end: 2021
  15. INFLECTRA [Suspect]
     Active Substance: INFLIXIMAB-DYYB
     Dosage: 258 MG, EVERY 8 WEEKS
     Route: 042
     Dates: start: 20180724, end: 20180724
  16. INFLECTRA [Suspect]
     Active Substance: INFLIXIMAB-DYYB
     Dosage: 258 MG, EVERY 8 WEEKS
     Route: 042
     Dates: start: 20191204, end: 20191204
  17. INFLECTRA [Suspect]
     Active Substance: INFLIXIMAB-DYYB
     Dosage: 258 MG (EVERY 8 WEEKS)
     Route: 042
     Dates: start: 20210421
  18. PREDNISONE. [Concomitant]
     Active Substance: PREDNISONE
     Dosage: 1 DF, INTERMITTENTLY WITH VARIABLE DOSING ? UNKNOWN IF ONGOING
     Route: 065
  19. INFLECTRA [Suspect]
     Active Substance: INFLIXIMAB-DYYB
     Dosage: 258 MG, EVERY 8 WEEKS
     Route: 042
     Dates: start: 20180919, end: 20180919
  20. INFLECTRA [Suspect]
     Active Substance: INFLIXIMAB-DYYB
     Dosage: 258 MG (EVERY 8 WEEKS)
     Route: 042
     Dates: start: 20200520, end: 20200520
  21. RISEDRONATE [Concomitant]
     Active Substance: RISEDRONATE SODIUM
     Indication: OSTEOPOROSIS
     Dosage: 1 UNK, MONTHLY, DOSAGE NOT AVAILABLE
     Route: 065
  22. SYNTHROID [Concomitant]
     Active Substance: LEVOTHYROXINE SODIUM
     Dosage: 125 UG, 1X/DAY
     Dates: end: 20170620
  23. VITAMIN B12 [Concomitant]
     Active Substance: CYANOCOBALAMIN
     Dosage: UNK
     Route: 065
     Dates: start: 20170512
  24. INFLECTRA [Suspect]
     Active Substance: INFLIXIMAB-DYYB
     Dosage: 242 MG, EVERY 8 WEEKS
     Route: 042
     Dates: start: 20170510, end: 20180207
  25. INFLECTRA [Suspect]
     Active Substance: INFLIXIMAB-DYYB
     Dosage: 258 MG (EVERY 8 WEEKS)
     Route: 042
     Dates: start: 20201104, end: 20201104
  26. INFLECTRA [Suspect]
     Active Substance: INFLIXIMAB-DYYB
     Dosage: 258 MG (EVERY 8 WEEKS)
     Route: 042
     Dates: start: 20210224
  27. CALCIUM + VITAMIN D [Concomitant]
     Active Substance: CALCIUM\VITAMIN D
     Dosage: 1 DF, DOSAGE NOT AVAILABLE
     Route: 065
  28. ELTROXIN [Concomitant]
     Active Substance: LEVOTHYROXINE
     Dosage: 100 UG, 1X/DAY
     Route: 065
     Dates: start: 20170620
  29. INFLECTRA [Suspect]
     Active Substance: INFLIXIMAB-DYYB
     Dosage: 258 MG, EVERY 8 WEEKS
     Route: 042
     Dates: start: 20190306, end: 20190306
  30. INFLECTRA [Suspect]
     Active Substance: INFLIXIMAB-DYYB
     Dosage: 258 MG, EVERY 8 WEEKS
     Route: 042
     Dates: start: 20190814, end: 20190814
  31. INFLECTRA [Suspect]
     Active Substance: INFLIXIMAB-DYYB
     Dosage: 258 MG (EVERY 8 WEEKS)
     Route: 042
     Dates: start: 20201230, end: 20201230
  32. PANTOPRAZOLE [Concomitant]
     Active Substance: PANTOPRAZOLE
     Dosage: 40 MG, DOSAGE NOT AVAILABLE
     Route: 065

REACTIONS (23)
  - Incorrect dose administered [Unknown]
  - Blood pressure fluctuation [Unknown]
  - Weight increased [Unknown]
  - Condition aggravated [Not Recovered/Not Resolved]
  - Peripheral swelling [Unknown]
  - Swelling [Not Recovered/Not Resolved]
  - Eye disorder [Not Recovered/Not Resolved]
  - Urinary tract infection [Recovered/Resolved]
  - Cyst [Unknown]
  - Blood pressure decreased [Not Recovered/Not Resolved]
  - Sneezing [Unknown]
  - Nasal congestion [Unknown]
  - Pain [Unknown]
  - Off label use [Unknown]
  - Lymphocytosis [Unknown]
  - Hypertension [Unknown]
  - Blood pressure diastolic decreased [Unknown]
  - Therapeutic response shortened [Unknown]
  - Therapeutic response unexpected [Unknown]
  - Thyroid mass [Not Recovered/Not Resolved]
  - Intentional product use issue [Unknown]
  - Fatigue [Recovered/Resolved]
  - Red cell distribution width increased [Unknown]

NARRATIVE: CASE EVENT DATE: 20170524
